FAERS Safety Report 7808420-X (Version None)
Quarter: 2011Q4

REPORT INFORMATION
  Report Type: 
  Country: None (occurrence: None)
  Receive Date: 20111007
  Receipt Date: 20110921
  Transmission Date: 20120403
  Serious: Yes (Other)
  Sender: FDA-Public Use
  Company Number: 019045

PATIENT
  Age: 79 Year
  Sex: Male

DRUGS (5)
  1. AVASTIN [Concomitant]
  2. LEVOFLOXACIN [Suspect]
     Indication: INFECTION PROPHYLAXIS
     Dosage: INTRAOCULAR
     Route: 031
     Dates: start: 20101113, end: 20101120
  3. LEVOFLOXACIN [Suspect]
     Indication: INFECTION PROPHYLAXIS
     Dosage: INTRAOCULAR
     Route: 031
     Dates: start: 20110101, end: 20110107
  4. PEGAPTANIB SODIUM (PEGAPTANIB SODIUM) UNKNOWN [Suspect]
     Indication: RETINAL VEIN OCCLUSION
     Dosage: 0.3 MG, INTRAOCULAR
     Route: 031
     Dates: start: 20110104, end: 20110104
  5. PEGAPTANIB SODIUM (PEGAPTANIB SODIUM) UNKNOWN [Suspect]
     Indication: RETINAL VEIN OCCLUSION
     Dosage: 0.3 MG, INTRAOCULAR
     Route: 031
     Dates: start: 20101116, end: 20101116

REACTIONS (2)
  - OCULAR HYPERTENSION [None]
  - INTRAOCULAR PRESSURE INCREASED [None]
